FAERS Safety Report 4589152-0 (Version None)
Quarter: 2005Q1

REPORT INFORMATION
  Report Type: 
  Country: None (occurrence: None)
  Receive Date: 20050215
  Receipt Date: 20050215
  Transmission Date: 20050727
  Serious: Yes (Other)
  Sender: FDA-Public Use
  Company Number: None

PATIENT
  Age: 9 Year
  Sex: Male
  Weight: 24.0406 kg

DRUGS (1)
  1. ADDERALL 10 [Suspect]
     Dosage: 1 PILL A DAY

REACTIONS (3)
  - CONVULSION [None]
  - MUSCLE TWITCHING [None]
  - TREMOR [None]
